FAERS Safety Report 5978417-3 (Version None)
Quarter: 2008Q4

REPORT INFORMATION
  Report Type: 
  Country: None (occurrence: None)
  Receive Date: 20081126
  Receipt Date: 20081121
  Transmission Date: 20090506
  Serious: Yes (Disabling)
  Sender: FDA-Public Use
  Company Number: DSU-2008-02041

PATIENT
  Age: 47 Year
  Sex: Female

DRUGS (2)
  1. FLOXIN OTIC [Suspect]
     Indication: PROPHYLAXIS
     Dosage: AURICULAR (OTIC)
     Route: 001
     Dates: start: 20080703, end: 20080101
  2. AURALGAN (BENZOCAINE, HYDROXYQUINOLINE SULFATE) (EAR DROPS) (BENZOCAIN [Suspect]
     Indication: DRUG USE FOR UNKNOWN INDICATION
     Dosage: AURICULAR (OTIC)
     Route: 001
     Dates: start: 20080703, end: 20080703

REACTIONS (1)
  - HYPOACUSIS [None]
